FAERS Safety Report 19906808 (Version 2)
Quarter: 2021Q4

REPORT INFORMATION
  Report Type: Spontaneous
  Country: CN (occurrence: CN)
  Receive Date: 20210930
  Receipt Date: 20211008
  Transmission Date: 20220303
  Serious: Yes (Other)
  Sender: FDA-Public Use
  Company Number: CN-SA-2021SA322705

PATIENT
  Age: 49 Year
  Sex: Female

DRUGS (6)
  1. ELOXATIN [Suspect]
     Active Substance: OXALIPLATIN
     Indication: Hereditary non-polyposis colorectal cancer syndrome
     Dosage: 100 MG (85 MG/M2), INTRAVENOUSLY, EVERY 2 WEEKS FOR 7 DOSES
     Route: 042
     Dates: start: 20181107, end: 20181107
  2. ELOXATIN [Suspect]
     Active Substance: OXALIPLATIN
     Indication: Adenocarcinoma of the cervix
     Dosage: 100 MG (85 MG/M2), INTRAVENOUSLY, EVERY 2 WEEKS FOR 7 DOSES
     Route: 042
     Dates: start: 201903, end: 201903
  3. BEVACIZUMAB [Suspect]
     Active Substance: BEVACIZUMAB
     Indication: Adenocarcinoma of the cervix
     Dosage: 0.3 G (7.5 MG/KG) IV EVERY 3 WEEKS FOR 8 DOSES
     Route: 042
     Dates: start: 20181107, end: 20181107
  4. BEVACIZUMAB [Suspect]
     Active Substance: BEVACIZUMAB
     Indication: Hereditary non-polyposis colorectal cancer syndrome
     Dosage: 0.3 G (7.5 MG/KG) IV EVERY 3 WEEKS FOR 8 DOSES
     Route: 042
     Dates: start: 201903, end: 201903
  5. PEMBROLIZUMAB [Suspect]
     Active Substance: PEMBROLIZUMAB
     Indication: Adenocarcinoma of the cervix
     Dosage: 100 MG (2 MG/KG) IV EVERY 3 WEEKS FOR 8 DOSES
     Route: 042
     Dates: start: 20181107, end: 20181107
  6. PEMBROLIZUMAB [Suspect]
     Active Substance: PEMBROLIZUMAB
     Indication: Hereditary non-polyposis colorectal cancer syndrome
     Dosage: 100 MG (2 MG/KG) IV EVERY 3 WEEKS FOR 8 DOSES
     Route: 042
     Dates: start: 201903, end: 201903

REACTIONS (2)
  - Autoimmune hepatitis [Recovered/Resolved]
  - Autoimmune hypothyroidism [Unknown]
